FAERS Safety Report 17622354 (Version 3)
Quarter: 2021Q1

REPORT INFORMATION
  Report Type: Spontaneous
  Country: US (occurrence: US)
  Receive Date: 20200403
  Receipt Date: 20210330
  Transmission Date: 20210419
  Serious: Yes (Other)
  Sender: FDA-Public Use
  Company Number: NVSC2020US087749

PATIENT
  Age: 83 Year
  Sex: Female

DRUGS (1)
  1. BEOVU [Suspect]
     Active Substance: BROLUCIZUMAB-DBLL
     Indication: NEOVASCULAR AGE-RELATED MACULAR DEGENERATION
     Dosage: 6 MG, QMO
     Route: 047
     Dates: start: 20200220

REACTIONS (6)
  - Vision blurred [Not Recovered/Not Resolved]
  - Keratic precipitates [Recovering/Resolving]
  - Vitreous floaters [Not Recovered/Not Resolved]
  - Corneal disorder [Not Recovered/Not Resolved]
  - Vitritis [Not Recovered/Not Resolved]
  - Blindness transient [Unknown]

NARRATIVE: CASE EVENT DATE: 20200326
